FAERS Safety Report 19498954 (Version 60)
Quarter: 2024Q1

REPORT INFORMATION
  Report Type: Spontaneous
  Country: GB (occurrence: None)
  Receive Date: 20210707
  Receipt Date: 20240328
  Transmission Date: 20240410
  Serious: Yes (Hospitalization, Other)
  Sender: FDA-Public Use
  Company Number: GB-PFIZER INC-2019511224

PATIENT
  Age: 68 Year
  Sex: Female
  Weight: 92 kg

DRUGS (232)
  1. METHOTREXATE [Suspect]
     Active Substance: METHOTREXATE
     Indication: Rheumatoid arthritis
     Dosage: 17.5 MILLIGRAM, Q.W., UNK UNK, Q.W., WEEKLY, AT 17.5 (UNKNOWN UNIT)
     Dates: start: 20100917
  2. METHOTREXATE [Suspect]
     Active Substance: METHOTREXATE
     Indication: Medication error
  3. METHOTREXATE [Suspect]
     Active Substance: METHOTREXATE
     Dosage: (AT 17.5, WEEKLY)
     Dates: start: 20100917
  4. METHOTREXATE [Suspect]
     Active Substance: METHOTREXATE
     Dosage: 17.5 MILLIGRAM, Q.W., UNK UNK, Q.W., WEEKLY, AT 17.5 (UNKNOWN UNIT)
     Dates: start: 20100917
  5. METHOTREXATE [Suspect]
     Active Substance: METHOTREXATE
     Dosage: (AT 17.5, WEEKLY)
     Dates: start: 20100917
  6. METHOTREXATE [Suspect]
     Active Substance: METHOTREXATE
  7. METHOTREXATE [Suspect]
     Active Substance: METHOTREXATE
  8. METHOTREXATE [Suspect]
     Active Substance: METHOTREXATE
  9. METHOTREXATE [Suspect]
     Active Substance: METHOTREXATE
     Dates: start: 20100917
  10. METHOTREXATE [Suspect]
     Active Substance: METHOTREXATE
     Dosage: 17.5 MILLIGRAM, Q.W., UNK UNK, Q.W., WEEKLY, AT 17.5 (UNKNOWN UNIT)
     Dates: start: 20100917
  11. METHOTREXATE [Suspect]
     Active Substance: METHOTREXATE
     Dates: start: 20100917
  12. METHOTREXATE [Suspect]
     Active Substance: METHOTREXATE
     Dosage: 18 MG, PER WEEK (UNKNOWN, WEEKLY, QW (AT 17.5, WEEKLY))
     Dates: start: 20100917
  13. METHOTREXATE [Suspect]
     Active Substance: METHOTREXATE
  14. METHOTREXATE [Suspect]
     Active Substance: METHOTREXATE
  15. ENBREL [Suspect]
     Active Substance: ETANERCEPT
     Indication: Rheumatoid arthritis
     Dosage: MYCLIC PENS
     Dates: start: 20100917
  16. ENBREL [Suspect]
     Active Substance: ETANERCEPT
     Dosage: MYCLIC PENS
     Dates: start: 20210917
  17. ENBREL [Suspect]
     Active Substance: ETANERCEPT
  18. ENBREL [Suspect]
     Active Substance: ETANERCEPT
     Dosage: MYCLIC PEN
  19. ENBREL [Suspect]
     Active Substance: ETANERCEPT
     Dosage: MYCLIC PENS
     Dates: start: 20100917
  20. ENBREL [Suspect]
     Active Substance: ETANERCEPT
     Dosage: MYCLIC PENS
     Dates: start: 20210917
  21. CIPROFLOXACIN [Suspect]
     Active Substance: CIPROFLOXACIN
     Indication: Abdominal discomfort
     Dates: start: 20100917
  22. CIPROFLOXACIN [Suspect]
     Active Substance: CIPROFLOXACIN
     Indication: Depression
     Dates: start: 20200917
  23. CIPROFLOXACIN [Suspect]
     Active Substance: CIPROFLOXACIN
     Indication: Rheumatoid arthritis
  24. CIPROFLOXACIN [Suspect]
     Active Substance: CIPROFLOXACIN
     Dates: start: 20200917
  25. CIPROFLOXACIN [Suspect]
     Active Substance: CIPROFLOXACIN
  26. CIPROFLOXACIN [Suspect]
     Active Substance: CIPROFLOXACIN
     Dates: start: 20100917
  27. CIPROFLOXACIN [Suspect]
     Active Substance: CIPROFLOXACIN
     Dates: start: 20100917
  28. CIPROFLOXACIN [Suspect]
     Active Substance: CIPROFLOXACIN
     Dosage: BATCH AND LOT TESTED AND FOUND WITHIN SPECIFICATIONS
     Dates: start: 20100917
  29. VENLAFAXINE HYDROCHLORIDE [Suspect]
     Active Substance: VENLAFAXINE HYDROCHLORIDE
     Indication: Rheumatoid arthritis
  30. VENLAFAXINE HYDROCHLORIDE [Suspect]
     Active Substance: VENLAFAXINE HYDROCHLORIDE
     Indication: Depression
  31. VENLAFAXINE HYDROCHLORIDE [Suspect]
     Active Substance: VENLAFAXINE HYDROCHLORIDE
  32. VENLAFAXINE HYDROCHLORIDE [Suspect]
     Active Substance: VENLAFAXINE HYDROCHLORIDE
  33. VENLAFAXINE HYDROCHLORIDE [Suspect]
     Active Substance: VENLAFAXINE HYDROCHLORIDE
  34. VENLAFAXINE HYDROCHLORIDE [Suspect]
     Active Substance: VENLAFAXINE HYDROCHLORIDE
  35. VENLAFAXINE HYDROCHLORIDE [Suspect]
     Active Substance: VENLAFAXINE HYDROCHLORIDE
     Dosage: 225 MG, DAILY, ONCE A DAY, PROLONGED RELEASE
  36. OMEPRAZOLE [Suspect]
     Active Substance: OMEPRAZOLE
     Indication: Abdominal discomfort
     Dosage: BATCH AND LOT TESTED AND FOUND WITHIN SPECIFICATIONS
     Dates: start: 20100917
  37. OMEPRAZOLE [Suspect]
     Active Substance: OMEPRAZOLE
     Dates: start: 20100917
  38. OMEPRAZOLE [Suspect]
     Active Substance: OMEPRAZOLE
     Dosage: 20 MG, 2X/DAY FOR STOMACH
     Dates: start: 20100917
  39. OMEPRAZOLE [Suspect]
     Active Substance: OMEPRAZOLE
     Dates: start: 20200917
  40. OMEPRAZOLE [Suspect]
     Active Substance: OMEPRAZOLE
     Dosage: 480 MILLIGRAM DAILY; 20 MG, 2X/DAY
  41. OMEPRAZOLE [Suspect]
     Active Substance: OMEPRAZOLE
     Dosage: 480 MILLIGRAM DAILY; 20 MG, 2X/DAY
  42. OMEPRAZOLE [Suspect]
     Active Substance: OMEPRAZOLE
     Dosage: 20 MG, 4 TIMES PER DAY
     Dates: start: 20100917
  43. OMEPRAZOLE [Suspect]
     Active Substance: OMEPRAZOLE
     Dosage: 20 MG, 2X/DAY
     Dates: start: 20100917
  44. OMEPRAZOLE [Suspect]
     Active Substance: OMEPRAZOLE
     Dates: start: 20100917
  45. OMEPRAZOLE [Suspect]
     Active Substance: OMEPRAZOLE
     Dates: start: 20100917
  46. OMEPRAZOLE [Suspect]
     Active Substance: OMEPRAZOLE
     Dosage: 20 MG, 4 TIMES PER DAY
     Dates: start: 20100917
  47. OMEPRAZOLE [Suspect]
     Active Substance: OMEPRAZOLE
  48. OMEPRAZOLE [Suspect]
     Active Substance: OMEPRAZOLE
  49. OMEPRAZOLE [Suspect]
     Active Substance: OMEPRAZOLE
     Dates: start: 20200917
  50. OMEPRAZOLE [Suspect]
     Active Substance: OMEPRAZOLE
  51. OMEPRAZOLE [Suspect]
     Active Substance: OMEPRAZOLE
  52. OMEPRAZOLE [Suspect]
     Active Substance: OMEPRAZOLE
  53. OMEPRAZOLE [Suspect]
     Active Substance: OMEPRAZOLE
  54. OMEPRAZOLE [Suspect]
     Active Substance: OMEPRAZOLE
     Dosage: 480 MILLIGRAM DAILY; 20 MG, 2X/DAY
  55. OMEPRAZOLE [Suspect]
     Active Substance: OMEPRAZOLE
     Dosage: 480 MILLIGRAM DAILY; 20 MG, 2X/DAY
  56. OMEPRAZOLE [Suspect]
     Active Substance: OMEPRAZOLE
  57. OMEPRAZOLE [Suspect]
     Active Substance: OMEPRAZOLE
     Dates: start: 20100917
  58. OMEPRAZOLE [Suspect]
     Active Substance: OMEPRAZOLE
     Dosage: 20 MG EVERY 1 HOUR
  59. IRBESARTAN [Suspect]
     Active Substance: IRBESARTAN
     Indication: Abdominal discomfort
     Dates: start: 20100917
  60. IRBESARTAN [Suspect]
     Active Substance: IRBESARTAN
     Indication: Depression
     Dates: start: 20100917
  61. IRBESARTAN [Suspect]
     Active Substance: IRBESARTAN
     Dates: start: 20100912
  62. IRBESARTAN [Suspect]
     Active Substance: IRBESARTAN
  63. IRBESARTAN [Suspect]
     Active Substance: IRBESARTAN
     Dates: start: 20100912
  64. IRBESARTAN [Suspect]
     Active Substance: IRBESARTAN
     Dates: start: 20100917
  65. IRBESARTAN [Suspect]
     Active Substance: IRBESARTAN
     Dates: start: 20100917
  66. IRBESARTAN [Suspect]
     Active Substance: IRBESARTAN
     Dates: start: 20100917
  67. IRBESARTAN [Suspect]
     Active Substance: IRBESARTAN
  68. IRBESARTAN [Suspect]
     Active Substance: IRBESARTAN
  69. PHYLLOCONTIN [Suspect]
     Active Substance: AMINOPHYLLINE
     Indication: Product used for unknown indication
     Dates: start: 20100917
  70. PHYLLOCONTIN [Suspect]
     Active Substance: AMINOPHYLLINE
     Dates: start: 20100917
  71. PHYLLOCONTIN [Suspect]
     Active Substance: AMINOPHYLLINE
     Dates: start: 20200917
  72. PHYLLOCONTIN [Suspect]
     Active Substance: AMINOPHYLLINE
  73. PHYLLOCONTIN [Suspect]
     Active Substance: AMINOPHYLLINE
  74. PHYLLOCONTIN [Suspect]
     Active Substance: AMINOPHYLLINE
  75. PHYLLOCONTIN [Suspect]
     Active Substance: AMINOPHYLLINE
     Dates: start: 20200917
  76. CARBOCYSTEINE [Suspect]
     Active Substance: CARBOCYSTEINE
     Indication: Rheumatoid arthritis
     Dates: start: 20100917
  77. CARBOCYSTEINE [Suspect]
     Active Substance: CARBOCYSTEINE
     Dates: start: 20200917
  78. CARBOCYSTEINE [Suspect]
     Active Substance: CARBOCYSTEINE
  79. CARBOCYSTEINE [Suspect]
     Active Substance: CARBOCYSTEINE
  80. CARBOCYSTEINE [Suspect]
     Active Substance: CARBOCYSTEINE
     Dates: start: 20100917
  81. CARBOCYSTEINE [Suspect]
     Active Substance: CARBOCYSTEINE
     Dates: start: 20200917
  82. CARBOCYSTEINE [Suspect]
     Active Substance: CARBOCYSTEINE
     Dates: start: 20210917
  83. CARBOCYSTEINE [Suspect]
     Active Substance: CARBOCYSTEINE
     Dates: start: 20210917
  84. CARBOCYSTEINE [Suspect]
     Active Substance: CARBOCYSTEINE
     Dates: start: 20120917
  85. CARBOCYSTEINE [Suspect]
     Active Substance: CARBOCYSTEINE
  86. CARBOCYSTEINE [Suspect]
     Active Substance: CARBOCYSTEINE
  87. CARBOCYSTEINE [Suspect]
     Active Substance: CARBOCYSTEINE
  88. CARBAMAZEPINE [Suspect]
     Active Substance: CARBAMAZEPINE
     Indication: Depression
  89. CARBAMAZEPINE [Suspect]
     Active Substance: CARBAMAZEPINE
  90. CARBAMAZEPINE [Suspect]
     Active Substance: CARBAMAZEPINE
  91. CARBAMAZEPINE [Suspect]
     Active Substance: CARBAMAZEPINE
     Dates: start: 20200917
  92. CARBAMAZEPINE [Suspect]
     Active Substance: CARBAMAZEPINE
  93. CARBAMAZEPINE [Suspect]
     Active Substance: CARBAMAZEPINE
     Dates: start: 20210917
  94. CARBAMAZEPINE [Suspect]
     Active Substance: CARBAMAZEPINE
     Dates: start: 20100917
  95. DIPHENYLGUANIDINE [Suspect]
     Active Substance: DIPHENYLGUANIDINE
     Indication: Abdominal discomfort
  96. DIPHENYLGUANIDINE [Suspect]
     Active Substance: DIPHENYLGUANIDINE
     Indication: Depression
  97. DIPHENYLGUANIDINE [Suspect]
     Active Substance: DIPHENYLGUANIDINE
  98. DIPHENYLGUANIDINE [Suspect]
     Active Substance: DIPHENYLGUANIDINE
  99. DIPHENYLGUANIDINE [Suspect]
     Active Substance: DIPHENYLGUANIDINE
  100. DIPHENYLGUANIDINE [Suspect]
     Active Substance: DIPHENYLGUANIDINE
  101. DIPHENYLGUANIDINE [Suspect]
     Active Substance: DIPHENYLGUANIDINE
  102. DITIOCARB ZINC [Suspect]
     Active Substance: DITIOCARB ZINC
     Indication: Depression
  103. DITIOCARB ZINC [Suspect]
     Active Substance: DITIOCARB ZINC
     Indication: Abdominal discomfort
  104. DITIOCARB ZINC [Suspect]
     Active Substance: DITIOCARB ZINC
  105. DITIOCARB ZINC [Suspect]
     Active Substance: DITIOCARB ZINC
  106. DITIOCARB ZINC [Suspect]
     Active Substance: DITIOCARB ZINC
  107. DITIOCARB ZINC [Suspect]
     Active Substance: DITIOCARB ZINC
  108. VENLAFAXINE HYDROCHLORIDE [Suspect]
     Active Substance: VENLAFAXINE HYDROCHLORIDE
     Indication: Depression
  109. VENLAFAXINE HYDROCHLORIDE [Suspect]
     Active Substance: VENLAFAXINE HYDROCHLORIDE
     Indication: Rheumatoid arthritis
  110. VENLAFAXINE HYDROCHLORIDE [Suspect]
     Active Substance: VENLAFAXINE HYDROCHLORIDE
  111. VENLAFAXINE HYDROCHLORIDE [Suspect]
     Active Substance: VENLAFAXINE HYDROCHLORIDE
  112. CARBAMAZEPINE [Suspect]
     Active Substance: CARBAMAZEPINE
     Indication: Depression
  113. CARBAMAZEPINE [Suspect]
     Active Substance: CARBAMAZEPINE
     Indication: Rheumatoid arthritis
  114. CARBAMAZEPINE [Suspect]
     Active Substance: CARBAMAZEPINE
  115. CARBAMAZEPINE [Suspect]
     Active Substance: CARBAMAZEPINE
     Dates: start: 20100917
  116. CARBAMAZEPINE [Suspect]
     Active Substance: CARBAMAZEPINE
     Dates: start: 20200917
  117. CARBAMAZEPINE [Suspect]
     Active Substance: CARBAMAZEPINE
     Dates: start: 20210917
  118. CARBAMAZEPINE [Suspect]
     Active Substance: CARBAMAZEPINE
  119. CARBAMAZEPINE [Suspect]
     Active Substance: CARBAMAZEPINE
  120. CARBAMAZEPINE [Suspect]
     Active Substance: CARBAMAZEPINE
     Dates: start: 20100917
  121. CARBAMAZEPINE [Suspect]
     Active Substance: CARBAMAZEPINE
     Dates: start: 20210917
  122. CARBAMAZEPINE [Suspect]
     Active Substance: CARBAMAZEPINE
     Dates: start: 20100917
  123. CARBAMAZEPINE [Suspect]
     Active Substance: CARBAMAZEPINE
  124. GUANIDINE [Suspect]
     Active Substance: GUANIDINE
     Indication: Abdominal discomfort
     Dosage: 1,3-DIPHENYLGUANIDINE
  125. GUANIDINE [Suspect]
     Active Substance: GUANIDINE
     Indication: Depression
     Dosage: 1,3-DIPHENYLGUANIDINE
  126. GUANIDINE [Suspect]
     Active Substance: GUANIDINE
     Dosage: 1,3-DIPHENYLGUANIDINE
  127. GUANIDINE [Suspect]
     Active Substance: GUANIDINE
  128. GUANIDINE [Suspect]
     Active Substance: GUANIDINE
     Dosage: 1,3-DIPHENYLGUANIDINE
  129. GUANIDINE [Suspect]
     Active Substance: GUANIDINE
  130. CIPROFLOXACIN HYDROCHLORIDE [Suspect]
     Active Substance: CIPROFLOXACIN HYDROCHLORIDE
     Indication: Depression
     Dates: start: 20100917
  131. CIPROFLOXACIN HYDROCHLORIDE [Suspect]
     Active Substance: CIPROFLOXACIN HYDROCHLORIDE
     Indication: Rheumatoid arthritis
     Dates: start: 20100917
  132. CIPROFLOXACIN HYDROCHLORIDE [Suspect]
     Active Substance: CIPROFLOXACIN HYDROCHLORIDE
     Indication: Abdominal discomfort
     Dates: start: 20200917
  133. CIPROFLOXACIN HYDROCHLORIDE [Suspect]
     Active Substance: CIPROFLOXACIN HYDROCHLORIDE
  134. CIPROFLOXACIN HYDROCHLORIDE [Suspect]
     Active Substance: CIPROFLOXACIN HYDROCHLORIDE
  135. CIPROFLOXACIN HYDROCHLORIDE [Suspect]
     Active Substance: CIPROFLOXACIN HYDROCHLORIDE
  136. CIPROFLOXACIN HYDROCHLORIDE [Suspect]
     Active Substance: CIPROFLOXACIN HYDROCHLORIDE
  137. CIPROFLOXACIN HYDROCHLORIDE [Suspect]
     Active Substance: CIPROFLOXACIN HYDROCHLORIDE
  138. CIPROFLOXACIN HYDROCHLORIDE [Suspect]
     Active Substance: CIPROFLOXACIN HYDROCHLORIDE
  139. CIPROFLOXACIN HYDROCHLORIDE [Suspect]
     Active Substance: CIPROFLOXACIN HYDROCHLORIDE
     Dates: start: 20200917
  140. ZINC [Suspect]
     Active Substance: PYRITHIONE ZINC\ZINC\ZINC CHLORIDE
     Indication: Abdominal discomfort
     Dosage: DIETHYLDITHIOCARBAMATE
  141. ZINC [Suspect]
     Active Substance: PYRITHIONE ZINC\ZINC\ZINC CHLORIDE
     Indication: Depression
     Dosage: DIETHYLDITHIOCARBAMATE
  142. ZINC [Suspect]
     Active Substance: PYRITHIONE ZINC\ZINC\ZINC CHLORIDE
  143. ZINC [Suspect]
     Active Substance: PYRITHIONE ZINC\ZINC\ZINC CHLORIDE
  144. ZINC [Suspect]
     Active Substance: PYRITHIONE ZINC\ZINC\ZINC CHLORIDE
  145. SULFAGUANIDINE [Suspect]
     Active Substance: SULFAGUANIDINE
     Indication: Abdominal discomfort
  146. SULFAGUANIDINE [Suspect]
     Active Substance: SULFAGUANIDINE
  147. SULFAGUANIDINE [Suspect]
     Active Substance: SULFAGUANIDINE
  148. SULFAGUANIDINE [Suspect]
     Active Substance: SULFAGUANIDINE
  149. SULFAGUANIDINE [Suspect]
     Active Substance: SULFAGUANIDINE
  150. AMINOPHYLLINE [Suspect]
     Active Substance: AMINOPHYLLINE
     Indication: Product used for unknown indication
     Dates: start: 20100917
  151. AMINOPHYLLINE [Suspect]
     Active Substance: AMINOPHYLLINE
     Dates: start: 20200917
  152. AMINOPHYLLINE [Suspect]
     Active Substance: AMINOPHYLLINE
     Dates: start: 20100917
  153. AMINOPHYLLINE [Suspect]
     Active Substance: AMINOPHYLLINE
  154. AMINOPHYLLINE [Suspect]
     Active Substance: AMINOPHYLLINE
  155. AMINOPHYLLINE [Suspect]
     Active Substance: AMINOPHYLLINE
  156. AMINOPHYLLINE [Suspect]
     Active Substance: AMINOPHYLLINE
  157. CHARCOAL ACTIVATED [Suspect]
     Active Substance: ACTIVATED CHARCOAL
     Indication: Product used for unknown indication
  158. CHARCOAL ACTIVATED [Suspect]
     Active Substance: ACTIVATED CHARCOAL
  159. CHARCOAL ACTIVATED [Suspect]
     Active Substance: ACTIVATED CHARCOAL
  160. CHARCOAL ACTIVATED [Suspect]
     Active Substance: ACTIVATED CHARCOAL
  161. CHARCOAL ACTIVATED [Suspect]
     Active Substance: ACTIVATED CHARCOAL
  162. THEOPHYLLINE [Suspect]
     Active Substance: THEOPHYLLINE
     Indication: Depression
  163. THEOPHYLLINE [Suspect]
     Active Substance: THEOPHYLLINE
     Indication: Abdominal discomfort
  164. THEOPHYLLINE [Suspect]
     Active Substance: THEOPHYLLINE
  165. AMOXICILLIN [Suspect]
     Active Substance: AMOXICILLIN
     Indication: Abdominal discomfort
     Dosage: 125 MG/ 5 ML
     Dates: start: 20210904
  166. AMOXICILLIN [Suspect]
     Active Substance: AMOXICILLIN
     Dosage: 125 MG /5 ML
  167. AMOXICILLIN [Suspect]
     Active Substance: AMOXICILLIN
     Dates: start: 20210904
  168. PROBIOTICS NOS [Suspect]
     Active Substance: PROBIOTICS NOS
     Indication: Abdominal discomfort
  169. PROBIOTICS NOS [Suspect]
     Active Substance: PROBIOTICS NOS
     Indication: Depression
  170. PROBIOTICS NOS [Suspect]
     Active Substance: PROBIOTICS NOS
     Indication: Pituitary tumour
  171. VENLAFAXINE [Suspect]
     Active Substance: VENLAFAXINE HYDROCHLORIDE
     Indication: Rheumatoid arthritis
  172. VENLAFAXINE [Suspect]
     Active Substance: VENLAFAXINE HYDROCHLORIDE
     Indication: Depression
  173. VENLAFAXINE [Suspect]
     Active Substance: VENLAFAXINE HYDROCHLORIDE
  174. VENLAFAXINE [Suspect]
     Active Substance: VENLAFAXINE HYDROCHLORIDE
  175. VENLAFAXINE [Suspect]
     Active Substance: VENLAFAXINE HYDROCHLORIDE
  176. VENLAFAXINE [Suspect]
     Active Substance: VENLAFAXINE HYDROCHLORIDE
  177. BIFIDOBACTERIUM LONGUM [Suspect]
     Active Substance: BIFIDOBACTERIUM LONGUM
     Indication: Abdominal discomfort
  178. BIFIDOBACTERIUM LONGUM [Suspect]
     Active Substance: BIFIDOBACTERIUM LONGUM
     Indication: Depression
  179. BIFIDOBACTERIUM LONGUM [Suspect]
     Active Substance: BIFIDOBACTERIUM LONGUM
  180. BIFIDOBACTERIUM LONGUM [Suspect]
     Active Substance: BIFIDOBACTERIUM LONGUM
  181. SIMETHICONE (DIMETHICONE) [Suspect]
     Active Substance: DIMETHICONE
     Indication: Product used for unknown indication
  182. ACTIVATED CHARCOAL [Concomitant]
     Active Substance: ACTIVATED CHARCOAL
  183. CABERGOLINE [Concomitant]
     Active Substance: CABERGOLINE
     Indication: Pituitary tumour
  184. CABERGOLINE [Concomitant]
     Active Substance: CABERGOLINE
     Indication: Empty sella syndrome
  185. CABERGOLINE [Concomitant]
     Active Substance: CABERGOLINE
     Indication: Rheumatoid arthritis
  186. CABERGOLINE [Concomitant]
     Active Substance: CABERGOLINE
  187. CABERGOLINE [Concomitant]
     Active Substance: CABERGOLINE
  188. CABERGOLINE [Concomitant]
     Active Substance: CABERGOLINE
  189. CABERGOLINE [Concomitant]
     Active Substance: CABERGOLINE
  190. LEVOTHYROXINE [Concomitant]
     Active Substance: LEVOTHYROXINE\LEVOTHYROXINE SODIUM
     Indication: Abdominal discomfort
  191. LEVOTHYROXINE [Concomitant]
     Active Substance: LEVOTHYROXINE\LEVOTHYROXINE SODIUM
     Indication: Pituitary tumour
  192. LEVOTHYROXINE [Concomitant]
     Active Substance: LEVOTHYROXINE\LEVOTHYROXINE SODIUM
     Indication: Empty sella syndrome
  193. BENDROFLUMETHIAZIDE [Concomitant]
     Active Substance: BENDROFLUMETHIAZIDE
     Indication: Pituitary tumour
  194. BENDROFLUMETHIAZIDE [Concomitant]
     Active Substance: BENDROFLUMETHIAZIDE
     Indication: Depression
  195. BENDROFLUMETHIAZIDE [Concomitant]
     Active Substance: BENDROFLUMETHIAZIDE
  196. BENDROFLUMETHIAZIDE [Concomitant]
     Active Substance: BENDROFLUMETHIAZIDE
  197. BENDROFLUMETHIAZIDE [Concomitant]
     Active Substance: BENDROFLUMETHIAZIDE
  198. CETIRIZINE [Concomitant]
     Active Substance: CETIRIZINE HYDROCHLORIDE
     Indication: Abdominal discomfort
  199. CETIRIZINE [Concomitant]
     Active Substance: CETIRIZINE HYDROCHLORIDE
     Indication: Rheumatoid arthritis
  200. CETIRIZINE [Concomitant]
     Active Substance: CETIRIZINE HYDROCHLORIDE
  201. CETIRIZINE [Concomitant]
     Active Substance: CETIRIZINE HYDROCHLORIDE
  202. EZETIMIBE [Concomitant]
     Active Substance: EZETIMIBE
  203. EZETIMIBE [Concomitant]
     Active Substance: EZETIMIBE
  204. EZETIMIBE [Concomitant]
     Active Substance: EZETIMIBE
     Dosage: MYCLIC PEN
     Dates: start: 20210917
  205. EZETIMIBE [Concomitant]
     Active Substance: EZETIMIBE
     Dosage: MYCLIC PEN
     Dates: start: 20210917
  206. EZETIMIBE [Concomitant]
     Active Substance: EZETIMIBE
     Dosage: UNK
  207. EZETIMIBE [Concomitant]
     Active Substance: EZETIMIBE
     Dosage: UNK
  208. EZETIMIBE [Concomitant]
     Active Substance: EZETIMIBE
     Dosage: UNK
  209. ORUVAIL [Concomitant]
     Active Substance: KETOPROFEN
     Indication: Empty sella syndrome
  210. ORUVAIL [Concomitant]
     Active Substance: KETOPROFEN
  211. ORUVAIL [Concomitant]
     Active Substance: KETOPROFEN
  212. ORUVAIL [Concomitant]
     Active Substance: KETOPROFEN
  213. ORUVAIL [Concomitant]
     Active Substance: KETOPROFEN
  214. ORUVAIL [Concomitant]
     Active Substance: KETOPROFEN
  215. FOLIC ACID [Concomitant]
     Active Substance: FOLIC ACID
     Indication: Rheumatoid arthritis
  216. FOLIC ACID [Concomitant]
     Active Substance: FOLIC ACID
  217. FOLIC ACID [Concomitant]
     Active Substance: FOLIC ACID
  218. FOLIC ACID [Concomitant]
     Active Substance: FOLIC ACID
  219. FOLIC ACID [Concomitant]
     Active Substance: FOLIC ACID
     Dosage: UNK
  220. CHARCOAL ACTIVATED [Concomitant]
     Active Substance: ACTIVATED CHARCOAL
  221. CHARCOAL ACTIVATED [Concomitant]
     Active Substance: ACTIVATED CHARCOAL
     Dosage: QD
  222. CHARCOAL ACTIVATED [Concomitant]
     Active Substance: ACTIVATED CHARCOAL
     Dosage: QD
  223. CHARCOAL ACTIVATED [Concomitant]
     Active Substance: ACTIVATED CHARCOAL
     Dosage: QD
  224. DOXYCYCLINE [Concomitant]
     Active Substance: DOXYCYCLINE
     Indication: Pulmonary pain
  225. THEOPHYLLINE [Concomitant]
     Active Substance: THEOPHYLLINE
     Indication: Depression
  226. THEOPHYLLINE [Concomitant]
     Active Substance: THEOPHYLLINE
     Indication: Abdominal discomfort
  227. THEOPHYLLINE [Concomitant]
     Active Substance: THEOPHYLLINE
  228. KETOPROFEN [Concomitant]
     Active Substance: KETOPROFEN
  229. DIETARY SUPPLEMENT [Concomitant]
     Active Substance: DIETARY SUPPLEMENT
  230. DIETARY SUPPLEMENT [Concomitant]
     Active Substance: DIETARY SUPPLEMENT
  231. DIETARY SUPPLEMENT [Concomitant]
     Active Substance: DIETARY SUPPLEMENT
  232. DIETARY SUPPLEMENT [Concomitant]
     Active Substance: DIETARY SUPPLEMENT

REACTIONS (10)
  - Medication error [Unknown]
  - Drug abuse [Unknown]
  - Intentional product misuse [Unknown]
  - Lower respiratory tract infection [Not Recovered/Not Resolved]
  - Pulmonary pain [Unknown]
  - Arthropathy [Unknown]
  - Rash [Not Recovered/Not Resolved]
  - Abdominal discomfort [Unknown]
  - Amyloid arthropathy [Unknown]
  - Obesity [Unknown]

NARRATIVE: CASE EVENT DATE: 20201001
